FAERS Safety Report 7537957-6 (Version None)
Quarter: 2011Q2

REPORT INFORMATION
  Report Type: 
  Country: None (occurrence: None)
  Receive Date: 20110609
  Receipt Date: 20110527
  Transmission Date: 20111010
  Serious: Yes (Other)
  Sender: FDA-Public Use
  Company Number: CA-UCBSA-029827

PATIENT
  Sex: Female
  Weight: 84.5 kg

DRUGS (23)
  1. FOLIC ACID [Concomitant]
     Dosage: EXCEPT ON MTX DAY
  2. FENOFIBRATE MICRO [Concomitant]
     Indication: DYSLIPIDAEMIA
     Route: 048
  3. HYDROCHLOROTHIAZIDE [Concomitant]
  4. CIMZIA [Suspect]
     Indication: RHEUMATOID ARTHRITIS
     Route: 058
     Dates: start: 20110323, end: 20110323
  5. PREDNISONE [Concomitant]
     Indication: RHEUMATOID ARTHRITIS
     Route: 048
     Dates: start: 20080101
  6. PLAVIX [Concomitant]
     Indication: CEREBROVASCULAR ACCIDENT
     Route: 048
  7. ADALAT CC [Concomitant]
     Dosage: AT BEDTIME
     Route: 048
  8. CLONIDINE [Concomitant]
     Route: 048
  9. CETIRIZINE HCL [Concomitant]
     Indication: HYPERSENSITIVITY
  10. CANDESARTAN CILEXETIL [Concomitant]
     Indication: HYPERTENSION
     Route: 048
  11. VENTOLIN HFA [Concomitant]
     Route: 055
  12. HYDROXYZIN [Concomitant]
     Indication: HYPERSENSITIVITY
     Dosage: EVERY NIGHT AT BEDTIME
  13. ADALAT CC [Concomitant]
     Indication: HYPERTENSION
     Dosage: AT BEDTIME
     Route: 048
  14. NORTRIPTYLINE HCL [Concomitant]
     Indication: ANALGESIC THERAPY
     Dosage: EVERY NIGHT AT BEDTIME
     Route: 048
  15. CLONIDINE [Concomitant]
     Indication: HOT FLUSH
     Route: 048
  16. FENOFIBRATE MICRO [Concomitant]
     Indication: BLOOD CHOLESTEROL
     Route: 048
  17. ATACAND [Concomitant]
     Indication: HYPERTENSION
     Route: 048
  18. ACCOLATE [Concomitant]
     Indication: ASTHMA
     Route: 048
  19. TERAZOSIN [Concomitant]
     Dosage: 1 MG DAILY AT BEDTIME
  20. LEFLUNOMIDE [Concomitant]
  21. METHOTREXATE [Concomitant]
     Indication: RHEUMATOID ARTHRITIS
     Route: 048
     Dates: start: 20080101
  22. FLOVENT [Concomitant]
     Route: 055
  23. RANITIDINE [Concomitant]
     Indication: GASTRIC DISORDER
     Route: 048

REACTIONS (3)
  - HYPERSENSITIVITY [None]
  - PNEUMONIA [None]
  - INFLUENZA [None]
